FAERS Safety Report 14476075 (Version 3)
Quarter: 2018Q2

REPORT INFORMATION
  Report Type: Spontaneous
  Country: IT (occurrence: ES)
  Receive Date: 20180201
  Receipt Date: 20180618
  Transmission Date: 20180711
  Serious: Yes (Other)
  Sender: FDA-Public Use
  Company Number: IT-MYLANLABS-2018M1006615

PATIENT
  Age: 60 Year
  Sex: Female

DRUGS (2)
  1. IMATINIB [Suspect]
     Active Substance: IMATINIB
     Indication: CHRONIC MYELOID LEUKAEMIA
     Dosage: UNK
  2. IMATINIB [Suspect]
     Active Substance: IMATINIB
     Indication: SYSTEMIC SCLERODERMA
     Dosage: 400 MG, UNK
     Route: 065

REACTIONS (5)
  - Pseudoporphyria [Recovering/Resolving]
  - Blister [Recovering/Resolving]
  - Hypertrichosis [Recovering/Resolving]
  - Laceration [Recovering/Resolving]
  - Skin fragility [Recovering/Resolving]
